FAERS Safety Report 9172043 (Version 2)
Quarter: 2013Q4

REPORT INFORMATION
  Report Type: Spontaneous
  Country: US (occurrence: US)
  Receive Date: 20130319
  Receipt Date: 20131219
  Transmission Date: 20140711
  Serious: Yes (Hospitalization, Other)
  Sender: FDA-Public Use
  Company Number: US-BAYER-2013-034140

PATIENT
  Age: 18 Year
  Sex: Female
  Weight: 68.93 kg

DRUGS (5)
  1. YAZ [Suspect]
  2. YASMIN [Suspect]
     Indication: POLYCYSTIC OVARIES
  3. YASMIN [Suspect]
     Indication: OLIGOMENORRHOEA
  4. YASMIN [Suspect]
     Indication: PREMENSTRUAL DYSPHORIC DISORDER
  5. OCELLA [Suspect]

REACTIONS (4)
  - Cholecystectomy [None]
  - Injury [None]
  - Emotional distress [None]
  - Cholelithiasis [None]
